FAERS Safety Report 6418578-5 (Version None)
Quarter: 2009Q4

REPORT INFORMATION
  Report Type: 
  Country: None (occurrence: None)
  Receive Date: 20091026
  Receipt Date: 20091013
  Transmission Date: 20100525
  Serious: Yes (Life-Threatening, Other)
  Sender: FDA-Public Use
  Company Number: ADR37042009

PATIENT
  Age: 62 Year
  Sex: Female

DRUGS (11)
  1. SIMVASTATIN [Suspect]
     Dosage: 20 MG ORAL
     Route: 048
     Dates: start: 20071010, end: 20071011
  2. AMLODIPINE [Concomitant]
  3. ASPIRIN [Concomitant]
  4. BENDROFLUMETHIAZIDE [Concomitant]
  5. ENOXAPARIN SODIUM [Concomitant]
  6. ESTRADIOL [Concomitant]
  7. FENOFIBRATE [Concomitant]
  8. LEVOTHYROXINE SODIUM [Concomitant]
  9. LISINOPRIL [Concomitant]
  10. NORETHSTERONE ACETATE [Concomitant]
  11. OMEPRAZOLE [Concomitant]

REACTIONS (1)
  - ANAPHYLACTIC REACTION [None]
